FAERS Safety Report 23808360 (Version 6)
Quarter: 2025Q4

REPORT INFORMATION
  Report Type: Report from Study
  Country: US (occurrence: US)
  Receive Date: 20240502
  Receipt Date: 20251028
  Transmission Date: 20260118
  Serious: Yes (Hospitalization, Other)
  Sender: AUROBINDO
  Company Number: US-AUROBINDO-AUR-APL-2024-020437

PATIENT
  Age: 59 Year
  Sex: Male
  Weight: 99.6 kg

DRUGS (59)
  1. CYCLOPHOSPHAMIDE [Suspect]
     Active Substance: CYCLOPHOSPHAMIDE
     Indication: Peripheral T-cell lymphoma unspecified
     Dosage: 750 MILLIGRAM/SQ. METER, CYCLE 1 DAY 1 (C1D1)
     Route: 065
     Dates: start: 20240401, end: 20240401
  2. CYCLOPHOSPHAMIDE [Suspect]
     Active Substance: CYCLOPHOSPHAMIDE
     Dosage: 750 MILLIGRAM/SQ. METER, CYCLE 2 DAY 1 (C2D1)
     Route: 065
     Dates: start: 20240424, end: 20240424
  3. CYCLOPHOSPHAMIDE [Suspect]
     Active Substance: CYCLOPHOSPHAMIDE
     Dosage: 750 MILLIGRAM/SQ. METER
     Route: 065
     Dates: start: 20240605, end: 20240605
  4. CYCLOPHOSPHAMIDE [Suspect]
     Active Substance: CYCLOPHOSPHAMIDE
     Dosage: 750 MILLIGRAM/SQ. METER
     Route: 065
     Dates: start: 20240626, end: 20240626
  5. CYCLOPHOSPHAMIDE [Suspect]
     Active Substance: CYCLOPHOSPHAMIDE
     Dosage: 750 MILLIGRAM/SQ. METER
     Route: 065
     Dates: start: 20240717, end: 20240717
  6. PREDNISONE [Suspect]
     Active Substance: PREDNISONE
     Indication: Peripheral T-cell lymphoma unspecified
     Dosage: 100 MILLIGRAM, ONCE,  CYCLE 1 DAY 1 (C1D1)
     Route: 065
     Dates: start: 20240401
  7. PREDNISONE [Suspect]
     Active Substance: PREDNISONE
     Dosage: 100 MILLIGRAM
     Route: 065
     Dates: start: 20240402
  8. PREDNISONE [Suspect]
     Active Substance: PREDNISONE
     Dosage: 100 MILLIGRAM
     Route: 065
     Dates: start: 20240403
  9. PREDNISONE [Suspect]
     Active Substance: PREDNISONE
     Dosage: 100 MILLIGRAM
     Route: 065
     Dates: start: 20240404
  10. PREDNISONE [Suspect]
     Active Substance: PREDNISONE
     Dosage: 100 MILLIGRAM
     Route: 065
     Dates: start: 20240405
  11. PREDNISONE [Suspect]
     Active Substance: PREDNISONE
     Dosage: 100 MILLIGRAM, ONCE,  CYCLE 2 DAY 1 (C2D1)
     Route: 065
     Dates: start: 20240424, end: 20240424
  12. PREDNISONE [Suspect]
     Active Substance: PREDNISONE
     Dosage: 100 MILLIGRAM
     Route: 065
     Dates: start: 20240425
  13. PREDNISONE [Suspect]
     Active Substance: PREDNISONE
     Dosage: 100 MILLIGRAM
     Route: 065
     Dates: start: 20240426
  14. PREDNISONE [Suspect]
     Active Substance: PREDNISONE
     Dosage: 100 MILLIGRAM
     Route: 065
     Dates: start: 20240427
  15. PREDNISONE [Suspect]
     Active Substance: PREDNISONE
     Dosage: 100 MILLIGRAM
     Route: 065
     Dates: start: 20240428
  16. PREDNISONE [Suspect]
     Active Substance: PREDNISONE
     Dosage: 100 MILLIGRAM
     Route: 065
     Dates: start: 20240517
  17. PREDNISONE [Suspect]
     Active Substance: PREDNISONE
     Dosage: 100 MILLIGRAM
     Route: 065
     Dates: start: 20240518
  18. PREDNISONE [Suspect]
     Active Substance: PREDNISONE
     Dosage: 100 MILLIGRAM
     Route: 065
     Dates: start: 20240519
  19. PREDNISONE [Suspect]
     Active Substance: PREDNISONE
     Dosage: 100 MILLIGRAM
     Route: 065
     Dates: start: 20240520
  20. PREDNISONE [Suspect]
     Active Substance: PREDNISONE
     Dosage: 100 MILLIGRAM
     Route: 065
     Dates: start: 20240521
  21. PREDNISONE [Suspect]
     Active Substance: PREDNISONE
     Dosage: 100 MILLIGRAM
     Route: 065
     Dates: start: 20240605
  22. PREDNISONE [Suspect]
     Active Substance: PREDNISONE
     Dosage: 100 MILLIGRAM
     Route: 065
     Dates: start: 20240606
  23. PREDNISONE [Suspect]
     Active Substance: PREDNISONE
     Dosage: 100 MILLIGRAM
     Route: 065
     Dates: start: 20240607
  24. PREDNISONE [Suspect]
     Active Substance: PREDNISONE
     Dosage: 100 MILLIGRAM
     Route: 065
     Dates: start: 20240608
  25. PREDNISONE [Suspect]
     Active Substance: PREDNISONE
     Dosage: 100 MILLIGRAM
     Route: 065
     Dates: start: 20240609
  26. PREDNISONE [Suspect]
     Active Substance: PREDNISONE
     Dosage: 100 MILLIGRAM
     Route: 065
     Dates: start: 20240626
  27. PREDNISONE [Suspect]
     Active Substance: PREDNISONE
     Dosage: 100 MILLIGRAM
     Route: 065
     Dates: start: 20240627
  28. PREDNISONE [Suspect]
     Active Substance: PREDNISONE
     Dosage: 100 MILLIGRAM
     Route: 065
     Dates: start: 20240628
  29. PREDNISONE [Suspect]
     Active Substance: PREDNISONE
     Dosage: 100 MILLIGRAM
     Route: 065
     Dates: start: 20240629
  30. PREDNISONE [Suspect]
     Active Substance: PREDNISONE
     Dosage: 100 MILLIGRAM
     Route: 065
     Dates: start: 20240630
  31. PREDNISONE [Suspect]
     Active Substance: PREDNISONE
     Dosage: 100 MILLIGRAM
     Route: 065
     Dates: start: 20240717
  32. PREDNISONE [Suspect]
     Active Substance: PREDNISONE
     Dosage: 100 MILLIGRAM
     Route: 065
     Dates: start: 20240718
  33. PREDNISONE [Suspect]
     Active Substance: PREDNISONE
     Dosage: 100 MILLIGRAM
     Route: 065
     Dates: start: 20240719
  34. PREDNISONE [Suspect]
     Active Substance: PREDNISONE
     Dosage: 100 MILLIGRAM
     Route: 065
     Dates: start: 20240720
  35. PREDNISONE [Suspect]
     Active Substance: PREDNISONE
     Dosage: 100 MILLIGRAM
     Route: 065
     Dates: start: 20240721
  36. ONCOVIN [Suspect]
     Active Substance: VINCRISTINE SULFATE
     Indication: Peripheral T-cell lymphoma unspecified
     Dosage: 2 MILLIGRAM/SQ. METER, CYCLE 1 DAY 1 (C1D1)
     Route: 065
     Dates: start: 20240401, end: 20240401
  37. ONCOVIN [Suspect]
     Active Substance: VINCRISTINE SULFATE
     Dosage: 2 MILLIGRAM/SQ. METER, CYCLE 2 DAY 1 (C2D1)
     Route: 065
     Dates: start: 20240424, end: 20240424
  38. ONCOVIN [Suspect]
     Active Substance: VINCRISTINE SULFATE
     Dosage: 0.95 MILLIGRAM/SQ. METER
     Route: 065
     Dates: start: 20240605, end: 20240605
  39. ONCOVIN [Suspect]
     Active Substance: VINCRISTINE SULFATE
     Dosage: 0.93 MILLIGRAM/SQ. METER
     Route: 065
     Dates: start: 20240626, end: 20240626
  40. ONCOVIN [Suspect]
     Active Substance: VINCRISTINE SULFATE
     Dosage: 1.4 MILLIGRAM/SQ. METER
     Route: 065
     Dates: start: 20240717, end: 20240717
  41. EPIRUBICIN [Suspect]
     Active Substance: EPIRUBICIN
     Indication: Peripheral T-cell lymphoma unspecified
     Dosage: 110 MILLIGRAM/SQ. METER, CYCLE 1 DAY 1 (C1D1)
     Route: 065
     Dates: start: 20240401, end: 20240401
  42. EPIRUBICIN [Suspect]
     Active Substance: EPIRUBICIN
     Dosage: 110 MILLIGRAM/SQ. METER, CYCLE 2 DAY 1 (C2D1)
     Route: 065
     Dates: start: 20240424, end: 20240424
  43. EPIRUBICIN [Suspect]
     Active Substance: EPIRUBICIN
     Dosage: 50 MILLIGRAM/SQ. METER
     Route: 065
     Dates: start: 20240605, end: 20240605
  44. EPIRUBICIN [Suspect]
     Active Substance: EPIRUBICIN
     Dosage: 50 MILLIGRAM/SQ. METER
     Route: 065
     Dates: start: 20240626, end: 20240626
  45. EPIRUBICIN [Suspect]
     Active Substance: EPIRUBICIN
     Dosage: 50 MILLIGRAM/SQ. METER
     Route: 065
     Dates: start: 20240717, end: 20240717
  46. ZYLOPRIM [Concomitant]
     Active Substance: ALLOPURINOL
     Indication: Product used for unknown indication
     Dosage: 300 MILLIGRAM, DAILY
     Route: 048
     Dates: start: 20240321
  47. PROTONIX [Concomitant]
     Active Substance: PANTOPRAZOLE SODIUM
     Indication: Product used for unknown indication
     Dosage: 40 MILLIGRAM, ONCE A DAY
     Route: 048
     Dates: start: 20240321
  48. XYLOCAINE [Concomitant]
     Active Substance: LIDOCAINE HYDROCHLORIDE
     Indication: Product used for unknown indication
     Dosage: 10 MILLILITER, DAILY
     Dates: start: 20240320, end: 20240320
  49. FOLVITE [Concomitant]
     Active Substance: FOLIC ACID
     Indication: Product used for unknown indication
     Dosage: 1 MILLIGRAM, ONCE A DAY
     Route: 048
     Dates: start: 20240314
  50. Vitamin b12 forte [Concomitant]
     Indication: Product used for unknown indication
     Dosage: UNK
     Route: 065
     Dates: start: 20240414
  51. FUROSEMIDE [Concomitant]
     Active Substance: FUROSEMIDE
     Indication: Product used for unknown indication
     Dosage: 20 MILLIGRAM, ONCE A DAY
     Route: 042
     Dates: start: 20240416
  52. ACYCLOVIR [Concomitant]
     Active Substance: ACYCLOVIR
     Indication: Product used for unknown indication
     Dosage: 400 MILLIGRAM, TWO TIMES A DAY
     Route: 048
     Dates: start: 20240313
  53. FEXOFENADINE [Concomitant]
     Active Substance: FEXOFENADINE HYDROCHLORIDE
     Indication: Product used for unknown indication
     Dosage: 180 MILLIGRAM, ONCE A DAY
     Route: 048
     Dates: start: 20210603
  54. LOSARTAN [Concomitant]
     Active Substance: LOSARTAN
     Indication: Product used for unknown indication
     Dosage: 25 MILLIGRAM, ONCE A DAY
     Route: 048
     Dates: start: 20191010
  55. ONDANSETRON [Concomitant]
     Active Substance: ONDANSETRON
     Indication: Product used for unknown indication
     Dosage: 8 MILLIGRAM (AS NEEDED)
     Route: 048
     Dates: start: 20240401
  56. PROCHLORPERAZINE [Concomitant]
     Active Substance: PROCHLORPERAZINE
     Indication: Product used for unknown indication
     Dosage: 10 MILLIGRAM (AS NEEDED)
     Route: 048
     Dates: start: 20240401
  57. BACTRIM [Concomitant]
     Active Substance: SULFAMETHOXAZOLE\TRIMETHOPRIM
     Indication: Upper respiratory tract infection
     Dosage: 464 MILLIGRAM, ONCE A DAY
     Route: 042
     Dates: start: 20240515, end: 20240516
  58. BACTRIM [Concomitant]
     Active Substance: SULFAMETHOXAZOLE\TRIMETHOPRIM
     Indication: Upper respiratory tract infection
     Dosage: 320 MILLIGRAM, 3 TIMES A DAY
     Route: 048
     Dates: start: 20240515, end: 20240518
  59. TYLENOL [Concomitant]
     Active Substance: ACETAMINOPHEN
     Indication: Upper respiratory tract infection
     Dosage: 650 MILLIGRAM,6 HOURS PRN
     Route: 048

REACTIONS (7)
  - Upper respiratory tract infection [Recovered/Resolved]
  - Pneumonia [Recovered/Resolved]
  - Sinus tachycardia [Recovered/Resolved]
  - Hyponatraemia [Recovered/Resolved]
  - Blood lactate dehydrogenase increased [Not Recovered/Not Resolved]
  - Blood alkaline phosphatase increased [Not Recovered/Not Resolved]
  - Peripheral sensory neuropathy [Not Recovered/Not Resolved]

NARRATIVE: CASE EVENT DATE: 20240405
